FAERS Safety Report 6193177-1 (Version None)
Quarter: 2009Q2

REPORT INFORMATION
  Report Type: 
  Country: None (occurrence: None)
  Receive Date: 20090518
  Receipt Date: 20090508
  Transmission Date: 20091009
  Serious: Yes (Hospitalization)
  Sender: FDA-Public Use
  Company Number: A0731296A

PATIENT
  Age: 63 Year
  Sex: Female
  Weight: 111.4 kg

DRUGS (7)
  1. AVANDIA [Suspect]
     Dosage: 8MG PER DAY
     Route: 048
     Dates: start: 20000821, end: 20060401
  2. LIPITOR [Concomitant]
  3. LORAZEPAM [Concomitant]
     Dates: start: 20000101
  4. PROZAC [Concomitant]
     Dates: start: 20040101
  5. ACCUPRIL [Concomitant]
  6. RANITIDINE [Concomitant]
  7. POTASSIUM CHLORIDE [Concomitant]

REACTIONS (3)
  - CARDIAC FAILURE CONGESTIVE [None]
  - INJURY [None]
  - PAIN [None]
